FAERS Safety Report 6240722-3 (Version None)
Quarter: 2009Q2

REPORT INFORMATION
  Report Type: 
  Country: None (occurrence: None)
  Receive Date: 20090623
  Receipt Date: 20090324
  Transmission Date: 20091009
  Serious: No
  Sender: FDA-Public Use
  Company Number: US-ASTRAZENECA-2009UW04999

PATIENT
  Age: 83 Year
  Sex: Female
  Weight: 64.9 kg

DRUGS (5)
  1. PULMICORT RESPULES [Suspect]
     Indication: ASTHMA
     Route: 055
  2. PULMICORT RESPULES [Suspect]
     Route: 055
  3. XOPENEX [Concomitant]
     Indication: ASTHMA
  4. OSTEO BI-FLEX [Concomitant]
  5. CALCIUM [Concomitant]

REACTIONS (3)
  - DYSPHONIA [None]
  - MUSCLE SPASMS [None]
  - WRONG TECHNIQUE IN DRUG USAGE PROCESS [None]
